FAERS Safety Report 5521993-5 (Version None)
Quarter: 2007Q4

REPORT INFORMATION
  Report Type: 
  Country: None (occurrence: None)
  Receive Date: 20071120
  Receipt Date: 20070906
  Transmission Date: 20080405
  Serious: No
  Sender: FDA-Public Use
  Company Number: US-BRISTOL-MYERS SQUIBB COMPANY-13900774

PATIENT
  Sex: Male

DRUGS (3)
  1. AVAPRO [Suspect]
  2. AVALIDE [Suspect]
  3. COREG [Suspect]

REACTIONS (1)
  - LABILE BLOOD PRESSURE [None]
